FAERS Safety Report 4728197-4 (Version None)
Quarter: 2005Q3

REPORT INFORMATION
  Report Type: 
  Country: None (occurrence: None)
  Receive Date: 20050727
  Receipt Date: 20050304
  Transmission Date: 20060218
  Serious: Yes (Congenital Anomaly)
  Sender: FDA-Public Use
  Company Number: 2005102708

PATIENT
  Sex: Female

DRUGS (1)
  1. ZYRTEC [Suspect]
     Indication: RHINITIS ALLERGIC
     Dosage: (1 IN 1 D), PLACENTAL
     Route: 064
     Dates: start: 20031101

REACTIONS (7)
  - ASCITES [None]
  - DRUG EXPOSURE DURING PREGNANCY [None]
  - DYSPNOEA [None]
  - FOETAL DISORDER [None]
  - HEPATOMEGALY [None]
  - HYPOTONIA [None]
  - PALLOR [None]
